FAERS Safety Report 5633162-9 (Version None)
Quarter: 2008Q1

REPORT INFORMATION
  Report Type: 
  Country: None (occurrence: None)
  Receive Date: 20080221
  Receipt Date: 20080214
  Transmission Date: 20080703
  Serious: No
  Sender: FDA-Public Use
  Company Number: DE-BAXTER-2008BH001413

PATIENT
  Age: 56 Year
  Sex: Male

DRUGS (1)
  1. ADVATE [Suspect]
     Indication: DRUG USE FOR UNKNOWN INDICATION
     Dosage: DOSE UNIT:UNKNOWN
     Route: 065
     Dates: start: 20080112

REACTIONS (2)
  - FACTOR VIII INHIBITION [None]
  - RENAL FAILURE [None]
